FAERS Safety Report 6775009-3 (Version None)
Quarter: 2010Q2

REPORT INFORMATION
  Report Type: 
  Country: None (occurrence: None)
  Receive Date: 20100617
  Receipt Date: 20100611
  Transmission Date: 20101027
  Serious: Yes (Hospitalization)
  Sender: FDA-Public Use
  Company Number: A0864625A

PATIENT
  Age: 52 Year
  Sex: Male
  Weight: 127.3 kg

DRUGS (9)
  1. AVANDIA [Suspect]
     Indication: TYPE 2 DIABETES MELLITUS
     Dosage: 4MG PER DAY
     Route: 048
     Dates: start: 20031024, end: 20070101
  2. AVANDAMET [Suspect]
     Indication: TYPE 2 DIABETES MELLITUS
     Route: 048
     Dates: start: 20070124
  3. LOTREL [Concomitant]
  4. TOPROL-XL [Concomitant]
  5. DIOVAN HCT [Concomitant]
  6. GLUCOPHAGE [Concomitant]
  7. CIALIS [Concomitant]
  8. CLONIDINE [Concomitant]
  9. METFORMIN [Concomitant]
     Dates: end: 20070124

REACTIONS (11)
  - ANXIETY [None]
  - BRAIN INJURY [None]
  - CEREBRAL MICROANGIOPATHY [None]
  - CEREBROVASCULAR ACCIDENT [None]
  - DEFORMITY [None]
  - DEPRESSED MOOD [None]
  - ECONOMIC PROBLEM [None]
  - IRRITABILITY [None]
  - MARITAL PROBLEM [None]
  - PAIN [None]
  - UNEVALUABLE EVENT [None]
